FAERS Safety Report 22259266 (Version 1)
Quarter: 2023Q2

REPORT INFORMATION
  Report Type: Spontaneous
  Country: CN (occurrence: CN)
  Receive Date: 20230427
  Receipt Date: 20230427
  Transmission Date: 20230722
  Serious: Yes (Other)
  Sender: FDA-Public Use
  Company Number: CN-002147023-NVSC2023CN093755

PATIENT

DRUGS (1)
  1. ATORVASTATIN CALCIUM [Suspect]
     Active Substance: ATORVASTATIN CALCIUM
     Indication: Cerebral vasoconstriction
     Dosage: 10 MG, QD
     Route: 048

REACTIONS (2)
  - Liver injury [Unknown]
  - Product use in unapproved indication [Unknown]
